FAERS Safety Report 9236487 (Version 3)
Quarter: 2013Q2

REPORT INFORMATION
  Report Type: Spontaneous
  Country: SE (occurrence: None)
  Receive Date: 20130415
  Receipt Date: 20130430
  Transmission Date: 20140414
  Serious: Yes (Hospitalization)
  Sender: FDA-Public Use
  Company Number: 2013-1520

PATIENT
  Age: 44 Year
  Sex: Female

DRUGS (4)
  1. AZZALURE [Suspect]
     Indication: SKIN WRINKLING
     Dosage: 15 UNITS (15 UNITS, 1 IN 1 CYCLE(S)
     Dates: start: 20130322, end: 20130322
  2. AZZALURE [Suspect]
     Dosage: 15 UNITS (15 UNITS, 1 IN 1 CYCLE(S)
     Dates: start: 20130322, end: 20130322
  3. AZZALURE [Suspect]
     Dosage: 15 UNITS (15 UNITS, 1 IN 1 CYCLE(S)
     Dates: start: 20130322, end: 20130322
  4. RESTYLANE [Suspect]
     Indication: SKIN COSMETIC PROCEDURE

REACTIONS (7)
  - Dyspnoea [None]
  - Eyelid ptosis [None]
  - Muscular weakness [None]
  - Headache [None]
  - Pyrexia [None]
  - Dysphagia [None]
  - Facial paresis [None]
